FAERS Safety Report 10275230 (Version 1)
Quarter: 2014Q3

REPORT INFORMATION
  Report Type: Report from Study
  Country: JP (occurrence: JP)
  Receive Date: 20140703
  Receipt Date: 20140703
  Transmission Date: 20150326
  Serious: Yes (Hospitalization)
  Sender: FDA-Public Use
  Company Number: JP-009507513-1407JPN000098

PATIENT
  Age: 1 Year
  Sex: Female
  Weight: 9 kg

DRUGS (3)
  1. DIAZOXIDE CAPSULES 25 MG ^MSD^ [Suspect]
     Active Substance: DIAZOXIDE
     Dosage: 80 MG, 1 DAY (30MG IN THE MORNING AND EVENING, 20MG IN THE NOON)
     Route: 048
     Dates: start: 20130218
  2. DIAZOXIDE CAPSULES 25 MG ^MSD^ [Suspect]
     Active Substance: DIAZOXIDE
     Dosage: 70 MG, 1 DAY (30MG IN THE MORNING, 20MG IN THE NOON AND EVENING)
     Route: 048
     Dates: start: 20130201, end: 20130217
  3. DIAZOXIDE CAPSULES 25 MG ^MSD^ [Suspect]
     Active Substance: DIAZOXIDE
     Indication: HYPOGLYCAEMIA
     Dosage: 15 MG, TID(IN THE MORNING, NOON AND AFTERNOON)
     Route: 048
     Dates: start: 20130130, end: 20130131

REACTIONS (1)
  - Gastroenteritis [Recovered/Resolved]

NARRATIVE: CASE EVENT DATE: 20131225
